FAERS Safety Report 19246581 (Version 1)
Quarter: 2021Q2

REPORT INFORMATION
  Report Type: Spontaneous
  Country: US (occurrence: US)
  Receive Date: 20210512
  Receipt Date: 20210512
  Transmission Date: 20210717
  Serious: Yes (Death)
  Sender: FDA-Public Use
  Company Number: None

PATIENT
  Age: 40 Year
  Sex: Female
  Weight: 73.7 kg

DRUGS (1)
  1. ASPIRIN. [Suspect]
     Active Substance: ASPIRIN
     Dates: end: 20210308

REACTIONS (5)
  - Disease progression [None]
  - Brain oedema [None]
  - Metastatic neoplasm [None]
  - Superior vena cava syndrome [None]
  - Respiratory failure [None]

NARRATIVE: CASE EVENT DATE: 20210507
